FAERS Safety Report 21397977 (Version 1)
Quarter: 2022Q3

REPORT INFORMATION
  Report Type: Spontaneous
  Country: NL (occurrence: NL)
  Receive Date: 20220930
  Receipt Date: 20220930
  Transmission Date: 20221027
  Serious: Yes (Other)
  Sender: FDA-Public Use
  Company Number: NL-BAYER-2022P016213

PATIENT
  Age: 63 Year
  Sex: Female

DRUGS (1)
  1. ULTRAVIST [Suspect]
     Active Substance: IOPROMIDE
     Indication: Positron emission tomogram
     Dosage: 135 ML, ONCE 2ML/S
     Dates: start: 20220912, end: 20220912

REACTIONS (3)
  - Contrast media reaction [None]
  - Vomiting [None]
  - Nasal obstruction [None]

NARRATIVE: CASE EVENT DATE: 20220912
